FAERS Safety Report 19263593 (Version 2)
Quarter: 2021Q3

REPORT INFORMATION
  Report Type: Report from Study
  Country: US (occurrence: US)
  Receive Date: 20210517
  Receipt Date: 20210901
  Transmission Date: 20211014
  Serious: No
  Sender: FDA-Public Use
  Company Number: NVSC2021US109988

PATIENT

DRUGS (1)
  1. ENTRESTO [Suspect]
     Active Substance: SACUBITRIL\VALSARTAN
     Indication: PRODUCT USED FOR UNKNOWN INDICATION
     Dosage: 50 MG, BID, 24/26MG
     Route: 048
     Dates: start: 202104

REACTIONS (4)
  - Blood potassium decreased [Unknown]
  - Pain in extremity [Unknown]
  - Weight decreased [Unknown]
  - Hypertension [Unknown]
